FAERS Safety Report 9299924 (Version 1)
Quarter: 2013Q1

REPORT INFORMATION
  Report Type: Spontaneous
  Country: US (occurrence: None)
  Receive Date: 20121227
  Receipt Date: 20121227
  Transmission Date: 20140127
  Serious: No
  Sender: FDA-Public Use
  Company Number: PHHY2011US12963

PATIENT
  Age: 36 Year
  Sex: Male

DRUGS (8)
  1. AFINITOR [Suspect]
     Indication: ASTROCYTOMA, LOW GRADE
     Route: 048
     Dates: start: 20110215
  2. AFINITOR [Suspect]
     Indication: TUBEROUS SCLEROSIS
     Route: 048
     Dates: start: 20110215
  3. AFINITOR [Suspect]
     Route: 048
     Dates: start: 20110215
  4. TOPAMAX (TOPIRAMATE) [Concomitant]
  5. LIPITOR (ATORVASTATIN) [Concomitant]
  6. TRICOR (FENOFIBRATE) [Concomitant]
  7. INDERAL LA (PROPRANOLOL HYDROCHLORIDE) [Concomitant]
  8. CARBATROL (CARBAMAZEPINE) [Concomitant]

REACTIONS (1)
  - Diarrhoea [None]
